FAERS Safety Report 12510950 (Version 3)
Quarter: 2016Q3

REPORT INFORMATION
  Report Type: Spontaneous
  Country: US (occurrence: US)
  Receive Date: 20160629
  Receipt Date: 20160905
  Transmission Date: 20161109
  Serious: Yes (Other)
  Sender: FDA-Public Use
  Company Number: US-TEVA-670896USA

PATIENT
  Age: 36 Year
  Sex: Male

DRUGS (1)
  1. ZECUITY [Suspect]
     Active Substance: SUMATRIPTAN SUCCINATE
     Indication: MIGRAINE
     Route: 062
     Dates: start: 201605, end: 201605

REACTIONS (14)
  - Application site haemorrhage [Recovered/Resolved]
  - Application site irritation [Recovered/Resolved]
  - Application site warmth [Recovered/Resolved]
  - Application site burn [Recovered/Resolved]
  - Application site discomfort [Recovered/Resolved]
  - Application site erythema [Recovered/Resolved]
  - Application site scar [Recovered/Resolved]
  - Application site inflammation [Recovered/Resolved]
  - Application site rash [Recovered/Resolved]
  - Application site urticaria [Recovered/Resolved]
  - Product leakage [Recovered/Resolved]
  - Drug effect incomplete [Recovered/Resolved]
  - Application site pain [Recovered/Resolved]
  - Application site pruritus [Recovered/Resolved]

NARRATIVE: CASE EVENT DATE: 201605
